FAERS Safety Report 11170298 (Version 1)
Quarter: 2015Q2

REPORT INFORMATION
  Report Type: Spontaneous
  Country: GB (occurrence: GB)
  Receive Date: 20150608
  Receipt Date: 20150608
  Transmission Date: 20150821
  Serious: Yes (Hospitalization, Other)
  Sender: FDA-Public Use
  Company Number: GB-ACCORD-031154

PATIENT
  Age: 78 Year
  Sex: Male
  Weight: 120 kg

DRUGS (5)
  1. GLICLAZIDE [Concomitant]
     Active Substance: GLICLAZIDE
  2. HEPARIN [Concomitant]
     Active Substance: HEPARIN SODIUM
     Dosage: CURRENTLY WITHHELD AS PLATELETS BELOW 75
  3. CISPLATIN. [Suspect]
     Active Substance: CISPLATIN
     Indication: PRODUCT USED FOR UNKNOWN INDICATION
     Dosage: CYCLE 4
     Route: 042
     Dates: start: 20150408
  4. IRBESARTAN. [Concomitant]
     Active Substance: IRBESARTAN
  5. GEMCITABINE/GEMCITABINE HYDROCHLORIDE [Suspect]
     Active Substance: GEMCITABINE\GEMCITABINE HYDROCHLORIDE
     Indication: PRODUCT USED FOR UNKNOWN INDICATION
     Dosage: CYCLE 4
     Route: 042
     Dates: start: 20150408

REACTIONS (3)
  - Blood magnesium decreased [Not Recovered/Not Resolved]
  - Thrombocytopenia [Not Recovered/Not Resolved]
  - Electrolyte imbalance [Not Recovered/Not Resolved]

NARRATIVE: CASE EVENT DATE: 20150427
